FAERS Safety Report 7621574-3 (Version None)
Quarter: 2011Q3

REPORT INFORMATION
  Report Type: 
  Country: None (occurrence: None)
  Receive Date: 20110719
  Receipt Date: 20110627
  Transmission Date: 20111222
  Serious: No
  Sender: FDA-Public Use
  Company Number: US-B.I. PHARMACEUTICALS,INC./RIDGEFIELD-2011-BP-16391BP

PATIENT
  Age: 43 Year
  Sex: Male

DRUGS (6)
  1. ZOLOFT [Concomitant]
     Dates: start: 20030101
  2. FLOMAX [Suspect]
     Dosage: 0.16 MG
     Dates: start: 20040101
  3. LYRICA [Concomitant]
  4. FENTANYL-100 [Concomitant]
     Route: 062
     Dates: start: 20020101
  5. LUNESTA [Concomitant]
  6. TRILEPTAL [Concomitant]

REACTIONS (1)
  - HYPERHIDROSIS [None]
